FAERS Safety Report 25046167 (Version 1)
Quarter: 2025Q1

REPORT INFORMATION
  Report Type: Spontaneous
  Country: US (occurrence: None)
  Receive Date: 20250306
  Receipt Date: 20250306
  Transmission Date: 20250409
  Serious: Yes (Hospitalization, Other)
  Sender: FDA-CTU
  Company Number: None

PATIENT
  Sex: Female

DRUGS (1)
  1. VIGABATRIN [Suspect]
     Active Substance: VIGABATRIN
     Indication: Infantile spasms
     Dosage: 500MG QD ORAL ?
     Route: 048
     Dates: start: 20241213

REACTIONS (2)
  - Ketogenic diet [None]
  - Constipation [None]

NARRATIVE: CASE EVENT DATE: 20250223
